FAERS Safety Report 10420223 (Version 1)
Quarter: 2014Q3

REPORT INFORMATION
  Report Type: Spontaneous
  Country: US (occurrence: None)
  Receive Date: 20140701
  Receipt Date: 20140701
  Transmission Date: 20150326
  Serious: No
  Sender: FDA-Public Use
  Company Number: 1000066015

PATIENT
  Age: 29 Year
  Sex: Female

DRUGS (6)
  1. LINZESS [Suspect]
     Active Substance: LINACLOTIDE
     Indication: CONSTIPATION
     Dosage: 145 MCG (145 MCG, 1 IN 1 D), ORAL
     Route: 048
     Dates: start: 20140124, end: 20140127
  2. CALCIUM (CALCIUM) (CALCIUM) [Concomitant]
     Active Substance: CALCIUM
  3. VITAMIN B 6 (PYRIDOXINE HYDROCHLORIDE) (PYRIDOXINE HYDROCHLORIDE) [Concomitant]
  4. PRENATAL VITAMIN (PRENATAL VITAMIN) (PRENATAL VITAMIN) [Concomitant]
  5. DOXYLAMINE (DOXYLAMINE) (DOXYLAMINE) [Concomitant]
  6. ZOFRAN (ONDANSETRON) (ONDANSETRON) [Concomitant]

REACTIONS (2)
  - Exposure during pregnancy [None]
  - Drug ineffective [None]

NARRATIVE: CASE EVENT DATE: 20140124
